FAERS Safety Report 12589797 (Version 1)
Quarter: 2016Q3

REPORT INFORMATION
  Report Type: Not Available
  Country: None (occurrence: US)
  Receive Date: 20160725
  Receipt Date: 20160725
  Transmission Date: 20161109
  Serious: No
  Sender: FDA-Public Use
  Company Number: US-AKORN-34514

PATIENT
  Sex: Female

DRUGS (1)
  1. PROGESTERONE CAPSULES 100 MG [Suspect]
     Active Substance: PROGESTERONE

REACTIONS (2)
  - Pain [Unknown]
  - Pain in extremity [Unknown]
